FAERS Safety Report 5695716-3 (Version None)
Quarter: 2008Q2

REPORT INFORMATION
  Report Type: 
  Country: None (occurrence: None)
  Receive Date: 20080403
  Receipt Date: 20080328
  Transmission Date: 20081010
  Serious: Yes (Other)
  Sender: FDA-Public Use
  Company Number: S07-USA-06450-01

PATIENT
  Age: 38 Year
  Sex: Male

DRUGS (2)
  1. LEXAPRO [Suspect]
     Indication: DEPRESSION
     Dosage: 20 MG OD PO
     Route: 048
     Dates: start: 20070901
  2. LEXAPRO [Suspect]
     Indication: DEPRESSION
     Dosage: 10 MG OD PO
     Route: 048
     Dates: start: 20070901, end: 20070901

REACTIONS (2)
  - RECURRENT CANCER [None]
  - TESTIS CANCER [None]
